FAERS Safety Report 14384155 (Version 1)
Quarter: 2018Q1

REPORT INFORMATION
  Report Type: Spontaneous
  Country: US (occurrence: US)
  Receive Date: 20180115
  Receipt Date: 20180115
  Transmission Date: 20180509
  Serious: Yes (Other)
  Sender: FDA-Public Use
  Company Number: US-PFIZER INC-2018016156

PATIENT
  Age: 71 Year
  Sex: Female

DRUGS (1)
  1. SUTENT [Suspect]
     Active Substance: SUNITINIB MALATE
     Indication: RENAL CANCER
     Dosage: 50 MG, CYCLIC, (14 DAYS ON/ 7 DAYS OFF)
     Route: 048

REACTIONS (3)
  - Joint swelling [Unknown]
  - Skin fissures [Unknown]
  - Haematochezia [Unknown]

NARRATIVE: CASE EVENT DATE: 20180111
